FAERS Safety Report 8609239-2 (Version None)
Quarter: 2012Q3

REPORT INFORMATION
  Report Type: 
  Country: None (occurrence: None)
  Receive Date: 20120808
  Receipt Date: 20120801
  Transmission Date: 20120928
  Serious: Yes (Other)
  Sender: FDA-Public Use
  Company Number: GER/UKI/12/0025284

PATIENT
  Age: 69 Year
  Sex: Male
  Weight: 72 kg

DRUGS (10)
  1. GEMCITABINE [Suspect]
     Indication: PANCREATIC CARCINOMA
     Dosage: 1800 MG, INTRAVENOUS (NOT OTHERWISE SPECIFIED)
     Route: 042
     Dates: start: 20120118, end: 20120328
  2. CODEINE PHOSPHATE (CODEINE PHOSPHATE) [Concomitant]
  3. HYOSCINE HBR HYT [Concomitant]
  4. NEDOCROMIL SODIUM (NEDOCROMIL SODIUM) [Concomitant]
  5. CREON [Concomitant]
  6. SIMVASTATIN [Concomitant]
  7. DEXAMETHASONE SODIUM PHOSPHATE [Concomitant]
  8. ALTACITE PLUS (ALMAFOM) [Concomitant]
  9. OMEPRAZOLE [Concomitant]
  10. ACETAMINOPHEN [Concomitant]

REACTIONS (4)
  - PANCREATIC CARCINOMA [None]
  - DISEASE PROGRESSION [None]
  - PULMONARY EMBOLISM [None]
  - EMBOLISM [None]
